FAERS Safety Report 8231690-3 (Version None)
Quarter: 2012Q1

REPORT INFORMATION
  Report Type: 
  Country: None (occurrence: None)
  Receive Date: 20120323
  Receipt Date: 20120312
  Transmission Date: 20120608
  Serious: Yes (Life-Threatening, Hospitalization)
  Sender: FDA-Public Use
  Company Number: HK-MILLENNIUM PHARMACEUTICALS, INC.-2012-01839

PATIENT

DRUGS (3)
  1. THALIDOMIDE [Concomitant]
  2. VELCADE [Suspect]
     Indication: MULTIPLE MYELOMA
     Dosage: 1.3 MG, 1/WEEK
     Route: 042
  3. DEXAMETHASONE [Concomitant]

REACTIONS (1)
  - CARDIOTOXICITY [None]
